FAERS Safety Report 9608531 (Version 1)
Quarter: 2013Q4

REPORT INFORMATION
  Report Type: Spontaneous
  Country: NG (occurrence: NG)
  Receive Date: 20131009
  Receipt Date: 20131009
  Transmission Date: 20140711
  Serious: Yes (Life-Threatening)
  Sender: FDA-Public Use
  Company Number: NG-ASTRAZENECA-2013SE74338

PATIENT
  Age: 40 Year
  Sex: Female
  Weight: 56 kg

DRUGS (1)
  1. BUPIVACAINE [Suspect]
     Indication: ANAESTHESIA
     Route: 042

REACTIONS (4)
  - Dizziness [Recovered/Resolved]
  - Dysgeusia [Recovered/Resolved]
  - Convulsion [Recovered/Resolved]
  - Tachycardia [Recovered/Resolved]
